FAERS Safety Report 25338766 (Version 2)
Quarter: 2025Q2

REPORT INFORMATION
  Report Type: Report from Study
  Country: US (occurrence: US)
  Receive Date: 20250520
  Receipt Date: 20250529
  Transmission Date: 20250717
  Serious: Yes (Other)
  Sender: ABBVIE
  Company Number: US-ABBVIE-6283788

PATIENT
  Age: 66 Year
  Sex: Female
  Weight: 98.429 kg

DRUGS (8)
  1. CREON [Suspect]
     Active Substance: PANCRELIPASE AMYLASE\PANCRELIPASE LIPASE\PANCRELIPASE PROTEASE
     Indication: Product used for unknown indication
     Route: 048
     Dates: start: 20241026
  2. HYDROCHLOROTHIAZIDE [Concomitant]
     Active Substance: HYDROCHLOROTHIAZIDE
     Indication: Chronic kidney disease
  3. LEFLUNOMIDE [Concomitant]
     Active Substance: LEFLUNOMIDE
     Indication: Rheumatoid arthritis
  4. RINVOQ [Concomitant]
     Active Substance: UPADACITINIB
     Indication: Rheumatoid arthritis
  5. ATORVASTATIN [Concomitant]
     Active Substance: ATORVASTATIN
     Indication: Blood cholesterol increased
  6. TRIAMTERENE [Concomitant]
     Active Substance: TRIAMTERENE
     Indication: Chronic kidney disease
  7. PREDNISONE [Concomitant]
     Active Substance: PREDNISONE
     Indication: Rheumatoid arthritis
  8. POTASSIUM [Concomitant]
     Active Substance: POTASSIUM
     Indication: Chronic kidney disease

REACTIONS (7)
  - Renal cancer [Recovering/Resolving]
  - Thyroid hormones decreased [Recovering/Resolving]
  - Weight increased [Not Recovered/Not Resolved]
  - Dyspepsia [Unknown]
  - Steatorrhoea [Recovering/Resolving]
  - Defaecation disorder [Not Recovered/Not Resolved]
  - Flatulence [Recovering/Resolving]

NARRATIVE: CASE EVENT DATE: 20250301
